FAERS Safety Report 4393593-4 (Version None)
Quarter: 2004Q3

REPORT INFORMATION
  Report Type: 
  Country: None (occurrence: None)
  Receive Date: 20040707
  Receipt Date: 20040707
  Transmission Date: 20050211
  Serious: No
  Sender: FDA-Public Use
  Company Number: None

PATIENT
  Age: 48 Year
  Sex: Male
  Weight: 68.0396 kg

DRUGS (2)
  1. OXYCONTIN [Suspect]
     Indication: NEUROPATHY PERIPHERAL
     Dosage: ONE TID PO
     Route: 048
     Dates: start: 20040510
  2. OXYCONTIN [Suspect]
     Indication: SPINAL COLUMN STENOSIS
     Dosage: ONE TID PO
     Route: 048
     Dates: start: 20040510

REACTIONS (3)
  - DRUG EFFECT DECREASED [None]
  - NAUSEA [None]
  - PHARMACEUTICAL PRODUCT COMPLAINT [None]
